FAERS Safety Report 7426318-6 (Version None)
Quarter: 2011Q2

REPORT INFORMATION
  Report Type: 
  Country: None (occurrence: None)
  Receive Date: 20110420
  Receipt Date: 20110410
  Transmission Date: 20111010
  Serious: Yes (Life-Threatening, Hospitalization)
  Sender: FDA-Public Use
  Company Number: B0702593A

PATIENT
  Age: 62 Year
  Sex: Male
  Weight: 120 kg

DRUGS (3)
  1. MIXTARD HUMAN 70/30 [Concomitant]
     Indication: DIABETES MELLITUS
  2. FORTUM [Suspect]
     Indication: AMPUTATION
     Dosage: 1G PER DAY
     Route: 042
     Dates: start: 20110216, end: 20110219
  3. UNKNOWN MEDICATION [Concomitant]
     Indication: HYPERTENSION

REACTIONS (7)
  - MUSCULAR WEAKNESS [None]
  - INFUSION SITE SWELLING [None]
  - INFUSION SITE THROMBOSIS [None]
  - INFUSION SITE ERYTHEMA [None]
  - CEREBROVASCULAR ACCIDENT [None]
  - INFUSION SITE PAIN [None]
  - PRODUCT COUNTERFEIT [None]
